FAERS Safety Report 19878828 (Version 1)
Quarter: 2021Q3

REPORT INFORMATION
  Report Type: Spontaneous
  Country: US (occurrence: US)
  Receive Date: 20210924
  Receipt Date: 20210924
  Transmission Date: 20211014
  Serious: No
  Sender: FDA-Public Use
  Company Number: US-BRISTOL-MYERS SQUIBB COMPANY-BMS-2021-097431

PATIENT
  Age: 49 Year
  Sex: Female

DRUGS (1)
  1. SPRYCEL [Suspect]
     Active Substance: DASATINIB
     Indication: ACUTE LEUKAEMIA
     Dosage: 70 MILLIGRAM, QD
     Route: 065
     Dates: start: 202104

REACTIONS (4)
  - Neuralgia [Unknown]
  - Cognitive disorder [Unknown]
  - Memory impairment [Unknown]
  - Headache [Unknown]
